FAERS Safety Report 9736458 (Version 1)
Quarter: 2013Q4

REPORT INFORMATION
  Report Type: Spontaneous
  Country: US (occurrence: US)
  Receive Date: 20131206
  Receipt Date: 20131206
  Transmission Date: 20140711
  Serious: No
  Sender: FDA-Public Use
  Company Number: US-GLAXOSMITHKLINE-A1046944A

PATIENT
  Age: 70 Year
  Sex: Female

DRUGS (1)
  1. RHYTHMOL [Suspect]
     Indication: PRODUCT USED FOR UNKNOWN INDICATION
     Dosage: 150MG UNKNOWN
     Route: 065

REACTIONS (3)
  - Dyspepsia [Unknown]
  - Glossodynia [Unknown]
  - Diarrhoea [Unknown]
